FAERS Safety Report 16368711 (Version 2)
Quarter: 2019Q2

REPORT INFORMATION
  Report Type: Spontaneous
  Country: NL (occurrence: NL)
  Receive Date: 20190529
  Receipt Date: 20190603
  Transmission Date: 20190711
  Serious: Yes (Hospitalization)
  Sender: FDA-Public Use
  Company Number: NL-MYLANLABS-2019M1049855

PATIENT
  Age: 38 Year
  Sex: Male
  Weight: 185 kg

DRUGS (2)
  1. SPIRONOLACTONE. [Suspect]
     Active Substance: SPIRONOLACTONE
     Indication: CARDIOVASCULAR DISORDER
     Dosage: 25 MILLIGRAM, BID((2X DAAGS 1 TABLET // 2X DAAGS 25MG))
     Route: 048
     Dates: start: 201803
  2. SPIRONOLACTONE. [Suspect]
     Active Substance: SPIRONOLACTONE
     Dosage: 25 MILLIGRAM, QD(1X DAAGS 25MG)
     Route: 048
     Dates: start: 2011, end: 201803

REACTIONS (2)
  - Food interaction [Recovered/Resolved with Sequelae]
  - Hyperkalaemia [Recovered/Resolved with Sequelae]

NARRATIVE: CASE EVENT DATE: 20180327
